FAERS Safety Report 23586716 (Version 7)
Quarter: 2024Q3

REPORT INFORMATION
  Report Type: Spontaneous
  Country: US (occurrence: US)
  Receive Date: 20240301
  Receipt Date: 20240926
  Transmission Date: 20241017
  Serious: No
  Sender: PFIZER
  Company Number: US-PFIZER INC-PV202400029201

PATIENT
  Age: 64 Year
  Sex: Female

DRUGS (2)
  1. IBRANCE [Suspect]
     Active Substance: PALBOCICLIB
     Indication: Breast cancer
     Dosage: 100 MG, FOR 21 DAYS AND THEN STOP FOR 7 DAYS
     Dates: start: 202402
  2. LETROZOLE [Concomitant]
     Active Substance: LETROZOLE
     Dosage: UNK
     Dates: start: 2024

REACTIONS (14)
  - Pallor [Unknown]
  - Tinnitus [Unknown]
  - Alopecia [Unknown]
  - Blood test abnormal [Unknown]
  - White blood cell count decreased [Unknown]
  - Monocyte count decreased [Unknown]
  - Basophil count increased [Unknown]
  - Hot flush [Unknown]
  - Yellow skin [Recovering/Resolving]
  - Red cell distribution width increased [Unknown]
  - Liver disorder [Unknown]
  - Fatigue [Unknown]
  - Platelet count decreased [Unknown]
  - Red blood cell count decreased [Unknown]

NARRATIVE: CASE EVENT DATE: 20240101
